FAERS Safety Report 8433494-5 (Version None)
Quarter: 2012Q2

REPORT INFORMATION
  Report Type: 
  Country: None (occurrence: None)
  Receive Date: 20120613
  Receipt Date: 20120605
  Transmission Date: 20120825
  Serious: No
  Sender: FDA-Public Use
  Company Number: US-PFIZER INC-2012134882

PATIENT
  Sex: Male

DRUGS (6)
  1. REVLIMID [Suspect]
     Dosage: 10 MG, 1X/DAY
     Route: 048
     Dates: start: 20090501
  2. PROTONIX [Suspect]
     Indication: GASTROOESOPHAGEAL REFLUX DISEASE
     Dosage: 40 MG, 1X/DAY
  3. REVLIMID [Suspect]
     Indication: MULTIPLE MYELOMA
     Dosage: 25 MG, 1X/DAY
     Route: 048
     Dates: start: 20081201
  4. REVLIMID [Suspect]
     Dosage: 15 MG, 1X/DAY
     Route: 048
     Dates: start: 20090901
  5. REVLIMID [Suspect]
     Dosage: 15 MG, 1X/DAY
     Route: 048
     Dates: start: 20100501
  6. REVLIMID [Suspect]
     Dosage: 15 MG, 1X/DAY
     Route: 048
     Dates: start: 20110201

REACTIONS (2)
  - DECREASED APPETITE [None]
  - CONSTIPATION [None]
